FAERS Safety Report 5575767-X (Version None)
Quarter: 2007Q4

REPORT INFORMATION
  Report Type: 
  Country: None (occurrence: None)
  Receive Date: 20071221
  Receipt Date: 20071210
  Transmission Date: 20080405
  Serious: Yes (Other)
  Sender: FDA-Public Use
  Company Number: 2007ZA003960

PATIENT
  Sex: Female

DRUGS (2)
  1. ONICIT(PALONOSETRON HYDROCHLORIDE) INJECTION, 0.25MG/5ML [Suspect]
     Indication: PROPHYLAXIS OF NAUSEA AND VOMITING
     Dosage: 0.25 MG,SINGLE,INTRAVENOUS
     Route: 042
  2. CISPLATIN [Concomitant]

REACTIONS (5)
  - CONDITION AGGRAVATED [None]
  - DRUG INEFFECTIVE [None]
  - NAUSEA [None]
  - TACHYCARDIA [None]
  - VOMITING [None]
